FAERS Safety Report 23601693 (Version 1)
Quarter: 2024Q1

REPORT INFORMATION
  Report Type: Spontaneous
  Country: CA (occurrence: CA)
  Receive Date: 20240306
  Receipt Date: 20240306
  Transmission Date: 20240410
  Serious: Yes (Life-Threatening, Other)
  Sender: FDA-Public Use
  Company Number: CA-PFIZER INC-202400057330

PATIENT
  Age: 2 Year
  Sex: Female

DRUGS (6)
  1. IRINOTECAN HYDROCHLORIDE [Suspect]
     Active Substance: IRINOTECAN HYDROCHLORIDE
     Indication: Nephroblastoma
     Dosage: 28 MG, 1X/DAY
     Route: 042
  2. AMLODIPINE\TELMISARTAN [Concomitant]
     Active Substance: AMLODIPINE\TELMISARTAN
  3. CEFIXIME [Concomitant]
     Active Substance: CEFIXIME
  4. ENOXAPARIN [Concomitant]
     Active Substance: ENOXAPARIN
  5. GRAVOL [Concomitant]
     Active Substance: DIMENHYDRINATE
  6. LANSOPRAZOLE [Concomitant]
     Active Substance: LANSOPRAZOLE

REACTIONS (4)
  - Dehydration [Recovering/Resolving]
  - Diarrhoea [Recovering/Resolving]
  - Hyponatraemia [Recovering/Resolving]
  - Off label use [Unknown]
